FAERS Safety Report 5788562-3 (Version None)
Quarter: 2008Q2

REPORT INFORMATION
  Report Type: 
  Country: None (occurrence: None)
  Receive Date: 20080626
  Receipt Date: 20080613
  Transmission Date: 20081010
  Serious: Yes (Other)
  Sender: FDA-Public Use
  Company Number: DE-ELI_LILLY_AND_COMPANY-DE200806003288

PATIENT
  Age: 24 Year
  Sex: Male

DRUGS (8)
  1. ZYPREXA [Suspect]
     Indication: PERSONALITY DISORDER
     Dosage: 2.5 MG, UNK
     Route: 048
     Dates: start: 20070518, end: 20070519
  2. ZYPREXA [Suspect]
     Dosage: 5 MG, UNK
     Route: 048
     Dates: start: 20070520, end: 20070530
  3. LORAZEPAM [Concomitant]
     Dosage: 1 MG, UNK
     Route: 048
     Dates: start: 20070511, end: 20070514
  4. LORAZEPAM [Concomitant]
     Dosage: 8 MG, UNK
     Dates: start: 20070515
  5. LYRICA [Concomitant]
     Dosage: 100 MG, UNK
     Dates: start: 20070515, end: 20070515
  6. LYRICA [Concomitant]
     Dosage: 150 MG, UNK
     Dates: start: 20070516, end: 20070523
  7. LYRICA [Concomitant]
     Dosage: 300 MG, UNK
     Dates: start: 20070524, end: 20070529
  8. LYRICA [Concomitant]
     Dosage: 400 MG, UNK
     Dates: start: 20070530

REACTIONS (1)
  - HEPATIC ENZYME INCREASED [None]
